FAERS Safety Report 16825232 (Version 1)
Quarter: 2019Q3

REPORT INFORMATION
  Report Type: Spontaneous
  Country: US (occurrence: US)
  Receive Date: 20190919
  Receipt Date: 20190919
  Transmission Date: 20191005
  Serious: Yes (Death, Life-Threatening, Hospitalization, Other)
  Sender: FDA-Public Use
  Company Number: US-JNJFOC-20190914699

PATIENT
  Age: 54 Year
  Sex: Male

DRUGS (3)
  1. METOPROLOL. [Concomitant]
     Active Substance: METOPROLOL
     Indication: HYPERTENSION
     Route: 065
  2. HYDROXYZINE [Concomitant]
     Active Substance: HYDROXYZINE HYDROCHLORIDE
     Indication: PRODUCT USED FOR UNKNOWN INDICATION
     Route: 065
  3. PARACETAMOL [Suspect]
     Active Substance: ACETAMINOPHEN
     Indication: PRODUCT USED FOR UNKNOWN INDICATION
     Dosage: MASSIVE ACETAMINOPHEN INGESTION: ADDITIONAL INFO: OVERDOSE
     Route: 048

REACTIONS (6)
  - Overdose [Fatal]
  - Methaemoglobinaemia [Recovering/Resolving]
  - Coagulopathy [Unknown]
  - Hypotension [Unknown]
  - Hepatotoxicity [Not Recovered/Not Resolved]
  - Pulseless electrical activity [Fatal]
